FAERS Safety Report 4980629-2 (Version None)
Quarter: 2006Q2

REPORT INFORMATION
  Report Type: 
  Country: None (occurrence: None)
  Receive Date: 20060424
  Receipt Date: 20050701
  Transmission Date: 20061013
  Serious: Yes (Hospitalization, Disabling)
  Sender: FDA-Public Use
  Company Number: US-MERCK-0507USA00183

PATIENT
  Age: 61 Year
  Sex: Female
  Weight: 72 kg

DRUGS (6)
  1. VIOXX [Suspect]
     Indication: ARTHRITIS
     Route: 048
     Dates: start: 20011101, end: 20040901
  2. LEVOXYL [Concomitant]
     Route: 065
  3. ACTIVELLA [Concomitant]
     Route: 065
  4. NORVASC [Concomitant]
     Route: 065
  5. CALTRATE [Concomitant]
     Route: 065
  6. PAXIL [Concomitant]
     Route: 065

REACTIONS (3)
  - APPENDIX DISORDER [None]
  - LACUNAR INFARCTION [None]
  - MYOCARDIAL INFARCTION [None]
